FAERS Safety Report 23999269 (Version 1)
Quarter: 2024Q2

REPORT INFORMATION
  Report Type: Spontaneous
  Country: JP (occurrence: JP)
  Receive Date: 20240621
  Receipt Date: 20240621
  Transmission Date: 20240715
  Serious: Yes (Other)
  Sender: FDA-Public Use
  Company Number: JP-SUN PHARMACEUTICAL INDUSTRIES LTD-2024RR-452766

PATIENT
  Age: 42 Year
  Sex: Female

DRUGS (1)
  1. CAPECITABINE [Suspect]
     Active Substance: CAPECITABINE
     Indication: Breast cancer
     Dosage: 250 MILLIGRAM/SQ. METER, BID, OR 2 WEEKS, EVERY 3 WEEKS
     Route: 065

REACTIONS (3)
  - Pulmonary toxicity [Unknown]
  - Pleural effusion [Unknown]
  - Drug ineffective [Unknown]
